FAERS Safety Report 4971373-6 (Version None)
Quarter: 2006Q2

REPORT INFORMATION
  Report Type: 
  Country: None (occurrence: None)
  Receive Date: 20060406
  Receipt Date: 20060327
  Transmission Date: 20061013
  Serious: Yes (Other)
  Sender: FDA-Public Use
  Company Number: 2006042007

PATIENT
  Sex: Male

DRUGS (5)
  1. XANAX [Suspect]
     Indication: ANXIETY
     Dosage: 0.5 MG (0.25 MG, BID INTERVAL: EVERY DAY), ORAL
     Route: 048
     Dates: start: 20000101
  2. XANAX [Suspect]
     Indication: PANIC DISORDER
     Dosage: 0.5 MG (0.25 MG, BID INTERVAL: EVERY DAY), ORAL
     Route: 048
     Dates: start: 20000101
  3. LORAZEPAM [Suspect]
     Indication: ANXIETY
     Dosage: 2 MG (1 MG, BID, INTERVAL: EVERY DAY), ORAL
     Route: 048
     Dates: start: 20000101
  4. LORAZEPAM [Suspect]
     Indication: PANIC DISORDER
     Dosage: 2 MG (1 MG, BID, INTERVAL: EVERY DAY), ORAL
     Route: 048
     Dates: start: 20000101
  5. CITALOPRAM HYDROBROMIDE [Concomitant]

REACTIONS (2)
  - DRUG WITHDRAWAL SYNDROME [None]
  - PSYCHOMOTOR HYPERACTIVITY [None]
